FAERS Safety Report 7955045-1 (Version None)
Quarter: 2011Q4

REPORT INFORMATION
  Report Type: 
  Country: None (occurrence: None)
  Receive Date: 20111202
  Receipt Date: 20111124
  Transmission Date: 20120403
  Serious: Yes (Other)
  Sender: FDA-Public Use
  Company Number: PHHY2011JP104438

PATIENT
  Age: 37 Year
  Sex: Male

DRUGS (5)
  1. VINCRISTINE [Suspect]
     Indication: EPSTEIN-BARR VIRUS INFECTION
  2. CYCLOPHOSPHAMIDE [Suspect]
     Indication: EPSTEIN-BARR VIRUS INFECTION
     Dosage: 3 MG/KG, UNK
  3. DOXORUBICIN HCL [Suspect]
     Indication: EPSTEIN-BARR VIRUS INFECTION
  4. CYTARABINE [Suspect]
     Indication: EPSTEIN-BARR VIRUS INFECTION
  5. PREDNISOLONE [Suspect]
     Indication: EPSTEIN-BARR VIRUS INFECTION

REACTIONS (1)
  - NEUTROPENIA [None]
